FAERS Safety Report 16841058 (Version 7)
Quarter: 2020Q3

REPORT INFORMATION
  Report Type: Spontaneous
  Country: US (occurrence: US)
  Receive Date: 20190923
  Receipt Date: 20200716
  Transmission Date: 20201102
  Serious: Yes (Hospitalization, Other)
  Sender: FDA-Public Use
  Company Number: US-SA-2019SA260698

PATIENT

DRUGS (1)
  1. FABRAZYME [Suspect]
     Active Substance: AGALSIDASE BETA
     Indication: FABRY^S DISEASE
     Dosage: 85 MG, QOW
     Route: 041
     Dates: start: 20190727

REACTIONS (4)
  - Lyme disease [Unknown]
  - Exposure during pregnancy [Unknown]
  - Illness [Unknown]
  - Rash [Unknown]
